FAERS Safety Report 25682859 (Version 1)
Quarter: 2025Q3

REPORT INFORMATION
  Report Type: Spontaneous
  Country: US (occurrence: US)
  Receive Date: 20250814
  Receipt Date: 20250814
  Transmission Date: 20251021
  Serious: Yes (Hospitalization, Other)
  Sender: PFIZER
  Company Number: US-PFIZER INC-202500160451

PATIENT
  Age: 64 Year
  Sex: Female

DRUGS (23)
  1. IBRANCE [Suspect]
     Active Substance: PALBOCICLIB
     Route: 048
     Dates: start: 20230623
  2. AMLODIPINE [Concomitant]
     Active Substance: AMLODIPINE BESYLATE
  3. APAP-CAFFEIN DIHYDROC [Concomitant]
  4. ASPIRIN LOW EC [Concomitant]
  5. ATORVASTATIN [Concomitant]
     Active Substance: ATORVASTATIN
  6. BETA DIPROP [Concomitant]
  7. VITAMINS [Concomitant]
     Active Substance: VITAMINS
  8. DIPROLENE [Concomitant]
     Active Substance: BETAMETHASONE DIPROPIONATE
  9. MIGRAINE [ACETYLSALICYLIC ACID;CAFFEINE;PARACETAMOL] [Concomitant]
  10. GLIMEPIRIDE [Concomitant]
     Active Substance: GLIMEPIRIDE
  11. ACETAMINOPHEN\HYDROCODONE [Concomitant]
     Active Substance: ACETAMINOPHEN\HYDROCODONE
  12. HYZAAR [Concomitant]
     Active Substance: HYDROCHLOROTHIAZIDE\LOSARTAN POTASSIUM
  13. IBUPROFEN [Concomitant]
     Active Substance: IBUPROFEN
  14. JARDIANCE [Concomitant]
     Active Substance: EMPAGLIFLOZIN
  15. PAIN REL [Concomitant]
     Indication: Muscle spasms
  16. LETROZOLE [Concomitant]
     Active Substance: LETROZOLE
  17. HYDROCHLOROTHIAZIDE\LOSARTAN POTASSIUM [Concomitant]
     Active Substance: HYDROCHLOROTHIAZIDE\LOSARTAN POTASSIUM
  18. MAGNESIUM [Concomitant]
     Active Substance: MAGNESIUM
  19. METFORMIN HYDROCHLORIDE [Concomitant]
     Active Substance: METFORMIN HYDROCHLORIDE
  20. POT CHLORIDE ER [Concomitant]
  21. TYLENOL [Concomitant]
     Active Substance: ACETAMINOPHEN
  22. XGEVA [Concomitant]
     Active Substance: DENOSUMAB
  23. EXCEDRIN [Concomitant]
     Active Substance: ACETAMINOPHEN\ASPIRIN\CAFFEINE

REACTIONS (1)
  - Cerebrovascular accident [Recovered/Resolved]
